FAERS Safety Report 11756608 (Version 1)
Quarter: 2015Q4

REPORT INFORMATION
  Report Type: Report from Study
  Country: BR (occurrence: BR)
  Receive Date: 20151120
  Receipt Date: 20151120
  Transmission Date: 20160304
  Serious: Yes (Other)
  Sender: FDA-Public Use
  Company Number: BR-ROCHE-1503508

PATIENT
  Sex: Female
  Weight: 64 kg

DRUGS (14)
  1. ACTEMRA [Suspect]
     Active Substance: TOCILIZUMAB
     Route: 042
     Dates: start: 20150211
  2. PREDNISONE. [Concomitant]
     Active Substance: PREDNISONE
     Indication: RHEUMATOID ARTHRITIS
     Route: 065
  3. METHOTREXATE [Concomitant]
     Active Substance: METHOTREXATE
     Indication: RHEUMATOID ARTHRITIS
     Route: 065
  4. ALENIA (BRAZIL) [Concomitant]
     Active Substance: BUDESONIDE\FORMOTEROL FUMARATE
     Indication: ASTHMA
  5. AMITRIPTYLINE [Concomitant]
     Active Substance: AMITRIPTYLINE
     Indication: PAIN
  6. MIOFLEX A [Concomitant]
  7. METHOTREXATE [Concomitant]
     Active Substance: METHOTREXATE
     Route: 065
  8. RISEDROSS [Concomitant]
     Active Substance: RISEDRONATE SODIUM
  9. AMITRIPTYLINE [Concomitant]
     Active Substance: AMITRIPTYLINE
     Indication: ANXIETY
     Dosage: AT NIGHT
     Route: 065
  10. ACTEMRA [Suspect]
     Active Substance: TOCILIZUMAB
     Route: 042
     Dates: start: 20141029
  11. CALCIUM CARBONATE. [Concomitant]
     Active Substance: CALCIUM CARBONATE
  12. ACTEMRA [Suspect]
     Active Substance: TOCILIZUMAB
     Indication: RHEUMATOID ARTHRITIS
     Route: 042
     Dates: start: 20141001, end: 20150610
  13. ENALAPRIL MALEATE. [Concomitant]
     Active Substance: ENALAPRIL MALEATE
  14. CIPROFLOXACIN. [Concomitant]
     Active Substance: CIPROFLOXACIN
     Indication: INFECTION

REACTIONS (14)
  - Pain [Not Recovered/Not Resolved]
  - Bacterial infection [Not Recovered/Not Resolved]
  - Malaise [Not Recovered/Not Resolved]
  - Arthropathy [Not Recovered/Not Resolved]
  - Joint swelling [Not Recovered/Not Resolved]
  - Ankle deformity [Not Recovered/Not Resolved]
  - Arthritis [Not Recovered/Not Resolved]
  - Fall [Unknown]
  - Arthralgia [Not Recovered/Not Resolved]
  - Musculoskeletal stiffness [Not Recovered/Not Resolved]
  - Therapeutic response decreased [Unknown]
  - Oedema peripheral [Not Recovered/Not Resolved]
  - Gait disturbance [Not Recovered/Not Resolved]
  - Foot fracture [Not Recovered/Not Resolved]
